FAERS Safety Report 17985733 (Version 2)
Quarter: 2020Q4

REPORT INFORMATION
  Report Type: Report from Study
  Country: IN (occurrence: IN)
  Receive Date: 20200706
  Receipt Date: 20201002
  Transmission Date: 20210113
  Serious: Yes (Death, Other)
  Sender: FDA-Public Use
  Company Number: IN-SA-2020SA045803

PATIENT

DRUGS (3)
  1. TERIFLUNOMIDE. [Suspect]
     Active Substance: TERIFLUNOMIDE
     Indication: RELAPSING MULTIPLE SCLEROSIS
     Dosage: 14 MG, QD
     Route: 048
     Dates: start: 20200110, end: 20200215
  2. URSOCOL [Concomitant]
     Indication: CHOLELITHIASIS
     Dosage: 300 MG, BID
     Route: 048
     Dates: start: 20200316
  3. ECONORM [Concomitant]
     Indication: DIARRHOEA
     Dosage: UNK UNK, BID
     Route: 048

REACTIONS (2)
  - Liver injury [Fatal]
  - Drug reaction with eosinophilia and systemic symptoms [Not Recovered/Not Resolved]

NARRATIVE: CASE EVENT DATE: 20200213
